FAERS Safety Report 8829072 (Version 3)
Quarter: 2012Q4

REPORT INFORMATION
  Report Type: Report from Study
  Country: CH (occurrence: CH)
  Receive Date: 20121008
  Receipt Date: 20121018
  Transmission Date: 20130627
  Serious: Yes (Life-Threatening, Hospitalization, Other)
  Sender: FDA-Public Use
  Company Number: CH-ABBOTT-12P-151-0990692-00

PATIENT
  Age: 66 Year
  Sex: Male
  Weight: 95 kg

DRUGS (2)
  1. HUMIRA [Suspect]
     Indication: ANKYLOSING SPONDYLITIS
     Route: 058
     Dates: start: 20110526, end: 20120718
  2. HUMIRA [Suspect]
     Indication: ANKYLOSING SPONDYLITIS
     Route: 058
     Dates: start: 20120905

REACTIONS (20)
  - Enterocolitis haemorrhagic [Recovering/Resolving]
  - Clostridium difficile colitis [Recovering/Resolving]
  - Peritonitis [Recovering/Resolving]
  - Diarrhoea [Not Recovered/Not Resolved]
  - Pleural effusion [Recovering/Resolving]
  - Confusional state [Unknown]
  - Renal failure acute [Unknown]
  - Abdominal pain [Unknown]
  - Pallor [Unknown]
  - Livedo reticularis [Unknown]
  - Abdominal rigidity [Unknown]
  - Supraventricular tachycardia [Recovered/Resolved]
  - Generalised oedema [Unknown]
  - Hypoxia [Unknown]
  - Large intestinal ulcer [Unknown]
  - Fistula [Unknown]
  - Crohn^s disease [Unknown]
  - Wound secretion [Unknown]
  - Blood glucose increased [Unknown]
  - Postoperative ileus [Unknown]
